FAERS Safety Report 23567228 (Version 9)
Quarter: 2025Q3

REPORT INFORMATION
  Report Type: Spontaneous
  Country: US (occurrence: US)
  Receive Date: 20240226
  Receipt Date: 20250807
  Transmission Date: 20251020
  Serious: Yes (Other)
  Sender: PFIZER
  Company Number: US-PFIZER INC-202400026106

PATIENT
  Age: 51 Year
  Sex: Female

DRUGS (9)
  1. VELSIPITY [Suspect]
     Active Substance: ETRASIMOD ARGININE
     Indication: Colitis ulcerative
     Dosage: 2 MG, 1X/DAY
     Route: 048
     Dates: start: 20240124
  2. VELSIPITY [Suspect]
     Active Substance: ETRASIMOD ARGININE
     Dosage: 2 MG, 1X/DAY
     Route: 048
     Dates: start: 20240127
  3. VELSIPITY [Suspect]
     Active Substance: ETRASIMOD ARGININE
     Dosage: 2 MG, DAILY
     Dates: start: 202402, end: 202505
  4. CELEBREX [Concomitant]
     Active Substance: CELECOXIB
     Indication: Arthritis
  5. DICYCLOMINE [Concomitant]
     Active Substance: DICYCLOMINE HYDROCHLORIDE
  6. LIOTHYRONINE [Concomitant]
     Active Substance: LIOTHYRONINE
  7. MINOXIDIL [Concomitant]
     Active Substance: MINOXIDIL
     Indication: Hair disorder
  8. PIROXICAM [Concomitant]
     Active Substance: PIROXICAM
  9. PREDNISONE [Concomitant]
     Active Substance: PREDNISONE

REACTIONS (21)
  - Haematochezia [Unknown]
  - Oedema [Recovered/Resolved]
  - Blood creatinine decreased [Unknown]
  - Blood glucose increased [Unknown]
  - Aspartate aminotransferase increased [Unknown]
  - Alanine aminotransferase increased [Unknown]
  - Red blood cell count decreased [Unknown]
  - Haemoglobin decreased [Unknown]
  - Haematocrit decreased [Unknown]
  - Mean cell haemoglobin decreased [Unknown]
  - Mean cell haemoglobin concentration decreased [Unknown]
  - Red cell distribution width increased [Unknown]
  - White blood cell count decreased [Unknown]
  - Monocyte count increased [Unknown]
  - CD8 lymphocytes decreased [Unknown]
  - Eosinophil count increased [Unknown]
  - Neutrophil count increased [Unknown]
  - Blood iron decreased [Not Recovered/Not Resolved]
  - Condition aggravated [Unknown]
  - Therapeutic product effect incomplete [Unknown]
  - Drug ineffective [Unknown]

NARRATIVE: CASE EVENT DATE: 20240201
